FAERS Safety Report 13121879 (Version 3)
Quarter: 2017Q3

REPORT INFORMATION
  Report Type: Spontaneous
  Country: GB (occurrence: GB)
  Receive Date: 20170117
  Receipt Date: 20170825
  Transmission Date: 20171127
  Serious: Yes (Hospitalization)
  Sender: FDA-Public Use
  Company Number: GB-TEVA-728991ACC

PATIENT
  Age: 83 Year
  Sex: Male

DRUGS (11)
  1. GLYCERYL TRINITRATE [Suspect]
     Active Substance: NITROGLYCERIN
     Dosage: 1-2
     Route: 060
  2. ISOSORBIDE MONONITRATE. [Suspect]
     Active Substance: ISOSORBIDE MONONITRATE
     Dosage: 60 MILLIGRAM DAILY;
  3. COLECALCIFEROL [Concomitant]
     Active Substance: CHOLECALCIFEROL
  4. SOLIFENACIN [Concomitant]
     Active Substance: SOLIFENACIN
  5. LANSOPRAZOLE. [Concomitant]
     Active Substance: LANSOPRAZOLE
  6. BISOPROLOL [Suspect]
     Active Substance: BISOPROLOL
     Dosage: 5 MILLIGRAM DAILY;
  7. CANDESARTAN. [Suspect]
     Active Substance: CANDESARTAN
     Dosage: 4 MILLIGRAM DAILY;
  8. NICORANDIL [Concomitant]
     Active Substance: NICORANDIL
  9. COCODAMOL [Concomitant]
     Active Substance: ACETAMINOPHEN\CODEINE PHOSPHATE
     Dosage: 8/500
  10. SIMVASTATIN. [Concomitant]
     Active Substance: SIMVASTATIN
  11. DIORALYTE [Concomitant]
     Active Substance: CITRIC ACID MONOHYDRATE\DEXTROSE\POTASSIUM CATION\SODIUM CHLORIDE
     Dosage: ORAL POWDER
     Route: 048

REACTIONS (5)
  - Hypotension [Unknown]
  - Acute kidney injury [Not Recovered/Not Resolved]
  - Dyspnoea [Unknown]
  - Hyperkalaemia [Recovered/Resolved]
  - Circulatory collapse [Recovered/Resolved]
